FAERS Safety Report 19784747 (Version 1)
Quarter: 2021Q3

REPORT INFORMATION
  Report Type: Spontaneous
  Country: RU (occurrence: RU)
  Receive Date: 20210903
  Receipt Date: 20210903
  Transmission Date: 20211014
  Serious: Yes (Other)
  Sender: FDA-Public Use
  Company Number: RU-ORION CORPORATION ORION PHARMA-ENTC2021-0225

PATIENT
  Age: 60 Year
  Sex: Female
  Weight: 105 kg

DRUGS (1)
  1. STALEVO [Suspect]
     Active Substance: CARBIDOPA\ENTACAPONE\LEVODOPA
     Indication: PARKINSON^S DISEASE
     Dosage: STRENGTH: 100+25+250 MG ?START DATE:  JAN/FEB?2019
     Route: 048
     Dates: start: 2019, end: 201902

REACTIONS (6)
  - Seizure [Recovering/Resolving]
  - Dyskinesia [Recovering/Resolving]
  - Headache [Recovering/Resolving]
  - Drug ineffective [Recovering/Resolving]
  - Dyspepsia [Recovering/Resolving]
  - Parkinson^s disease [Recovering/Resolving]
